FAERS Safety Report 7039073-9 (Version None)
Quarter: 2010Q4

REPORT INFORMATION
  Report Type: 
  Country: None (occurrence: None)
  Receive Date: 20101012
  Receipt Date: 20101008
  Transmission Date: 20110411
  Serious: Yes (Death)
  Sender: FDA-Public Use
  Company Number: CN-ASTRAZENECA-2010SE40598

PATIENT
  Age: 39 Year
  Sex: Male

DRUGS (3)
  1. SEROQUEL [Suspect]
     Indication: SCHIZOPHRENIA
     Route: 048
     Dates: start: 20100817, end: 20100824
  2. SEROQUEL [Suspect]
     Route: 048
     Dates: start: 20100824, end: 20100826
  3. RISPERDAL [Concomitant]
     Indication: SCHIZOPHRENIA
     Dates: end: 20100817

REACTIONS (1)
  - SUDDEN DEATH [None]
